FAERS Safety Report 12195529 (Version 1)
Quarter: 2016Q1

REPORT INFORMATION
  Report Type: Spontaneous
  Country: JP (occurrence: JP)
  Receive Date: 20160321
  Receipt Date: 20160321
  Transmission Date: 20160526
  Serious: Yes (Other)
  Sender: FDA-Public Use
  Company Number: JP-WATSON-2016-05778

PATIENT
  Age: 1 Year
  Sex: Male

DRUGS (8)
  1. CARBOPLATIN (UNKNOWN) [Suspect]
     Active Substance: CARBOPLATIN
     Indication: CHEMOTHERAPY
     Dosage: FOUR 21- DAY CYCLES(DAY 4,5,6,7)
     Route: 065
  2. ETOPOSIDE (UNKNOWN) [Suspect]
     Active Substance: ETOPOSIDE
     Dosage: 200 MG/M2, CYCLICAL, DAYS -7, -6, -5, -4
     Route: 065
  3. METHOTREXATE [Concomitant]
     Active Substance: METHOTREXATE
     Indication: CHEMOTHERAPY
     Dosage: FOUR 21- DAY CYCLES(DAY 1)
     Route: 024
  4. L-PAM /00006401/ [Suspect]
     Active Substance: MELPHALAN
     Indication: CHEMOTHERAPY
     Dosage: DAYS -3, -2
     Route: 065
  5. VINCRISTINE [Concomitant]
     Active Substance: VINCRISTINE
     Indication: CHEMOTHERAPY
     Dosage: FOUR 21- DAY CYCLES (DAY 1)
     Route: 065
  6. ETOPOSIDE (UNKNOWN) [Suspect]
     Active Substance: ETOPOSIDE
     Indication: CHEMOTHERAPY
     Dosage: FOUR 21- DAY CYCLES(DAYS 1-5)
     Route: 065
  7. CISPLATIN. [Concomitant]
     Active Substance: CISPLATIN
     Indication: CHEMOTHERAPY
     Dosage: FOUR 21- DAY CYCLES(DAYS 1-5)
     Route: 065
  8. CYCLOPHOSPHAMIDE. [Concomitant]
     Active Substance: CYCLOPHOSPHAMIDE
     Indication: CHEMOTHERAPY
     Dosage: FOUR 21- DAY CYCLES(DAYS 1, 3, 5)
     Route: 065

REACTIONS (3)
  - Cerebrovascular accident [None]
  - Haemorrhage intracranial [None]
  - Haemangioma [Unknown]
